FAERS Safety Report 8533566-0 (Version None)
Quarter: 2012Q3

REPORT INFORMATION
  Report Type: 
  Country: None (occurrence: None)
  Receive Date: 20120724
  Receipt Date: 20120719
  Transmission Date: 20120928
  Serious: Yes (Disabling)
  Sender: FDA-Public Use
  Company Number: US-PFIZER INC-2012175200

PATIENT
  Sex: Male
  Weight: 120 kg

DRUGS (6)
  1. LIPITOR [Suspect]
     Indication: BLOOD CHOLESTEROL INCREASED
     Dosage: 40 MG, 1X/DAY
     Route: 048
  2. DIOVAN [Concomitant]
     Dosage: UNK
  3. COZAAR [Concomitant]
     Dosage: UNK
  4. FLUOXETINE [Concomitant]
     Dosage: UNK
  5. AMLODIPINE [Concomitant]
     Dosage: UNK
  6. VALIUM [Concomitant]
     Dosage: UNK

REACTIONS (3)
  - ARTHROPATHY [None]
  - BACK DISORDER [None]
  - THROMBOSIS [None]
